FAERS Safety Report 11685820 (Version 2)
Quarter: 2015Q4

REPORT INFORMATION
  Report Type: Spontaneous
  Country: IT (occurrence: IT)
  Receive Date: 20151030
  Receipt Date: 20151201
  Transmission Date: 20160304
  Serious: Yes (Other)
  Sender: FDA-Public Use
  Company Number: IT-STRIDES ARCOLAB LIMITED-2015SP001645

PATIENT

DRUGS (8)
  1. CYCLOSPORINE. [Suspect]
     Active Substance: CYCLOSPORINE
     Indication: BEHCET^S SYNDROME
     Dosage: UNK
     Dates: end: 2007
  2. PREDNISOLONE. [Suspect]
     Active Substance: PREDNISOLONE
     Dosage: LOW DOSAGE
  3. METHOTREXATE [Suspect]
     Active Substance: METHOTREXATE
     Indication: BEHCET^S SYNDROME
     Dosage: UNK
     Dates: end: 2007
  4. INTERFERON [Suspect]
     Active Substance: INTERFERON
     Indication: BEHCET^S SYNDROME
     Dosage: UNK
     Dates: end: 2007
  5. MYCOPHENOLATE MOFETIL. [Suspect]
     Active Substance: MYCOPHENOLATE MOFETIL
     Indication: BEHCET^S SYNDROME
     Dosage: UNK
     Dates: end: 2007
  6. AZATHIOPRINE. [Suspect]
     Active Substance: AZATHIOPRINE
     Indication: BEHCET^S SYNDROME
     Dosage: UNK
     Dates: end: 2007
  7. PREDNISOLONE. [Suspect]
     Active Substance: PREDNISOLONE
     Indication: BEHCET^S SYNDROME
     Dosage: UNK
  8. INFLIXIMAB [Suspect]
     Active Substance: INFLIXIMAB
     Indication: BEHCET^S SYNDROME
     Dosage: UNK
     Dates: end: 2007

REACTIONS (15)
  - Glaucoma [Unknown]
  - Multiple-drug resistance [Unknown]
  - Drug ineffective [Unknown]
  - Osteoporosis [Unknown]
  - Nephrolithiasis [Unknown]
  - Spinal fracture [Unknown]
  - Hepatic enzyme increased [Unknown]
  - Off label use [Unknown]
  - Nephropathy toxic [Unknown]
  - Depression suicidal [Unknown]
  - Pulmonary tuberculosis [Unknown]
  - Legionella infection [Unknown]
  - Pneumonia [Unknown]
  - Leukopenia [Unknown]
  - Cataract [Unknown]
